FAERS Safety Report 13601747 (Version 1)
Quarter: 2017Q2

REPORT INFORMATION
  Report Type: Report from Study
  Country: FR (occurrence: FR)
  Receive Date: 20170601
  Receipt Date: 20170601
  Transmission Date: 20170830
  Serious: Yes (Hospitalization, Other)
  Sender: FDA-Public Use
  Company Number: FR-MYLANLABS-2017M1032636

PATIENT

DRUGS (2)
  1. SORAFENIB [Suspect]
     Active Substance: SORAFENIB
     Indication: ACUTE MYELOID LEUKAEMIA
     Route: 065
  2. AZACITIDINE. [Suspect]
     Active Substance: AZACITIDINE
     Indication: ACUTE MYELOID LEUKAEMIA
     Dosage: 75 MG/ME2/D FOR 7 DAYS OF EACH CYCLE
     Route: 065

REACTIONS (2)
  - Hepatotoxicity [Unknown]
  - Bacteraemia [Unknown]
